FAERS Safety Report 8347990-2 (Version None)
Quarter: 2012Q2

REPORT INFORMATION
  Report Type: 
  Country: None (occurrence: None)
  Receive Date: 20120509
  Receipt Date: 20120501
  Transmission Date: 20120825
  Serious: Yes (Other)
  Sender: FDA-Public Use
  Company Number: US-ELI_LILLY_AND_COMPANY-US201205000721

PATIENT
  Sex: Male
  Weight: 99.773 kg

DRUGS (7)
  1. EFFIENT [Suspect]
     Indication: STENT PLACEMENT
     Dosage: 10 MG, QD
     Dates: start: 20111201
  2. METFORMIN HCL [Concomitant]
     Dosage: 500 MG, UNK
  3. ASPIRIN [Concomitant]
  4. METOPROLOL TARTRATE [Concomitant]
     Dosage: 50 MG, UNK
  5. HUMULIN 70/30 [Concomitant]
  6. LISINOPRIL [Concomitant]
     Dosage: 5 MG, UNK
  7. EFFIENT [Suspect]
     Dosage: 10 MG, EVERY OTHER DAY

REACTIONS (3)
  - MYOCARDIAL INFARCTION [None]
  - IN-STENT CORONARY ARTERY RESTENOSIS [None]
  - TREATMENT NONCOMPLIANCE [None]
